FAERS Safety Report 21394327 (Version 1)
Quarter: 2022Q3

REPORT INFORMATION
  Report Type: Spontaneous
  Country: FR (occurrence: FR)
  Receive Date: 20220930
  Receipt Date: 20220930
  Transmission Date: 20221027
  Serious: Yes (Hospitalization)
  Sender: FDA-Public Use
  Company Number: None

PATIENT
  Age: 29 Year
  Sex: Female

DRUGS (3)
  1. TRAMADOL [Suspect]
     Active Substance: TRAMADOL
     Indication: Intentional overdose
     Dosage: UNIT DOSE : 800 MG, DURATION : 1 DAYS
     Dates: start: 20220603, end: 20220603
  2. VALIUM [Suspect]
     Active Substance: DIAZEPAM
     Indication: Intentional overdose
     Dosage: 10 MG, SCORED TABLET, UNIT DOSE : 50 MG, DURATION : 1 DAYS
     Dates: start: 20220603, end: 20220603
  3. LORAZEPAM [Suspect]
     Active Substance: LORAZEPAM
     Indication: Intentional overdose
     Dosage: 1 MG, SCORED TABLET, UNIT DOSE : 6 MG, DURATION : 1 DAYS
     Dates: start: 20220603, end: 20220603

REACTIONS (2)
  - Poisoning deliberate [Recovered/Resolved]
  - Somnolence [Recovered/Resolved]

NARRATIVE: CASE EVENT DATE: 20220603
